FAERS Safety Report 6218750-3 (Version None)
Quarter: 2009Q2

REPORT INFORMATION
  Report Type: 
  Country: None (occurrence: None)
  Receive Date: 20090608
  Receipt Date: 20090526
  Transmission Date: 20091009
  Serious: Yes (Death, Hospitalization, Other)
  Sender: FDA-Public Use
  Company Number: US-AVENTIS-200914518US

PATIENT
  Sex: Female
  Weight: 55.34 kg

DRUGS (8)
  1. KETEK [Suspect]
     Indication: BRONCHITIS
     Dosage: DOSE: UNK
     Dates: start: 20060401
  2. ZITHROMAX [Suspect]
     Indication: BRONCHITIS
     Dosage: DOSE: UNK
     Dates: start: 20060401, end: 20060401
  3. ZITHROMAX [Suspect]
     Indication: VOMITING
     Dosage: DOSE: UNK
     Dates: start: 20060401, end: 20060401
  4. ZITHROMAX [Suspect]
     Dosage: DOSE: UNK
     Dates: start: 20060401, end: 20060401
  5. LEXAPRO [Concomitant]
     Dosage: DOSE: UNK
  6. BUSPAR [Concomitant]
     Indication: ANXIETY
     Dosage: DOSE: UNK
  7. NAPROSYN [Concomitant]
     Dosage: DOSE: UNK
  8. BIRTH CONTROL PILLS [Concomitant]
     Dosage: DOSE: UNK

REACTIONS (14)
  - ASPARTATE AMINOTRANSFERASE INCREASED [None]
  - BLOOD ALKALINE PHOSPHATASE INCREASED [None]
  - BLOOD BILIRUBIN INCREASED [None]
  - BLOOD CREATININE INCREASED [None]
  - CARDIO-RESPIRATORY ARREST [None]
  - HYPOKALAEMIA [None]
  - LIVER FUNCTION TEST ABNORMAL [None]
  - NERVOUS SYSTEM DISORDER [None]
  - PUPIL FIXED [None]
  - PYREXIA [None]
  - RENAL FAILURE [None]
  - STATUS EPILEPTICUS [None]
  - UNRESPONSIVE TO STIMULI [None]
  - VENTRICULAR FIBRILLATION [None]
